FAERS Safety Report 5199677-5 (Version None)
Quarter: 2007Q1

REPORT INFORMATION
  Report Type: 
  Country: None (occurrence: None)
  Receive Date: 20070105
  Receipt Date: 20061222
  Transmission Date: 20070707
  Serious: Yes (Hospitalization)
  Sender: FDA-Public Use
  Company Number: US-AMGEN-KDL188567

PATIENT
  Sex: Female

DRUGS (3)
  1. ENBREL [Suspect]
     Indication: PSORIATIC ARTHROPATHY
     Route: 058
     Dates: start: 20060501
  2. PLAQUENIL [Concomitant]
     Dates: start: 20031201
  3. CYMBALTA [Concomitant]

REACTIONS (8)
  - ASTHENIA [None]
  - EYE DISCHARGE [None]
  - EYE PAIN [None]
  - IRITIS [None]
  - PHOTOPHOBIA [None]
  - TRANSIENT ISCHAEMIC ATTACK [None]
  - URINARY TRACT INFECTION [None]
  - VISUAL ACUITY REDUCED [None]
